FAERS Safety Report 11716451 (Version 1)
Quarter: 2015Q4

REPORT INFORMATION
  Report Type: Spontaneous
  Country: US (occurrence: US)
  Receive Date: 20151109
  Receipt Date: 20151109
  Transmission Date: 20160304
  Serious: No
  Sender: FDA-Public Use
  Company Number: US-BAYER-2015-446421

PATIENT

DRUGS (1)
  1. CIPRO [Suspect]
     Active Substance: CIPROFLOXACIN HYDROCHLORIDE
     Indication: URINARY TRACT INFECTION
     Dosage: UNK
     Dates: start: 20140906

REACTIONS (7)
  - Feeling cold [None]
  - Pain in extremity [None]
  - Tinnitus [None]
  - Crying [None]
  - Burning sensation [None]
  - Gingival pain [None]
  - Pain [None]

NARRATIVE: CASE EVENT DATE: 201409
